FAERS Safety Report 9472193 (Version 1)
Quarter: 2013Q3

REPORT INFORMATION
  Report Type: Spontaneous
  Country: US (occurrence: US)
  Receive Date: 20130823
  Receipt Date: 20130823
  Transmission Date: 20140515
  Serious: Yes (Hospitalization, Other)
  Sender: FDA-Public Use
  Company Number: US-JNJFOC-20130807008

PATIENT
  Age: 74 Year
  Sex: Female

DRUGS (3)
  1. XARELTO [Suspect]
     Indication: CEREBROVASCULAR ACCIDENT PROPHYLAXIS
     Route: 048
     Dates: start: 201305
  2. XARELTO [Suspect]
     Indication: ATRIAL FIBRILLATION
     Route: 048
     Dates: start: 201305
  3. TRIAMTERENE/HCTZ [Concomitant]
     Indication: BLOOD PRESSURE
     Dosage: 37.5/25 MG
     Route: 048

REACTIONS (7)
  - Cardiac operation [Recovered/Resolved]
  - Cardiac failure [Unknown]
  - Atrial fibrillation [Unknown]
  - Myalgia [Not Recovered/Not Resolved]
  - Blood pressure increased [Recovered/Resolved]
  - Hypoacusis [Unknown]
  - Alopecia [Not Recovered/Not Resolved]
